FAERS Safety Report 6516037-2 (Version None)
Quarter: 2009Q4

REPORT INFORMATION
  Report Type: 
  Country: None (occurrence: None)
  Receive Date: 20091223
  Receipt Date: 20090612
  Transmission Date: 20100525
  Serious: No
  Sender: FDA-Public Use
  Company Number: US-ABBOTT-09P-163-0579763-00

PATIENT
  Sex: Male

DRUGS (1)
  1. LUPRON DEPOT [Suspect]
     Indication: PROSTATE CANCER
     Route: 030

REACTIONS (5)
  - ANXIETY [None]
  - DEPRESSION [None]
  - PAIN IN EXTREMITY [None]
  - RESPIRATORY DISORDER [None]
  - VISUAL IMPAIRMENT [None]
